FAERS Safety Report 12749202 (Version 1)
Quarter: 2016Q3

REPORT INFORMATION
  Report Type: Spontaneous
  Country: US (occurrence: US)
  Receive Date: 20160915
  Receipt Date: 20160915
  Transmission Date: 20161109
  Serious: No
  Sender: FDA-Public Use
  Company Number: US-ASTELLAS-2016US012965

PATIENT
  Sex: Male

DRUGS (1)
  1. XTANDI [Suspect]
     Active Substance: ENZALUTAMIDE
     Indication: PROSTATE CANCER METASTATIC
     Route: 065
     Dates: start: 20160321

REACTIONS (6)
  - Bedridden [Unknown]
  - Lacrimation increased [Unknown]
  - Somnolence [Unknown]
  - Decreased activity [Unknown]
  - Disorientation [Unknown]
  - Asthenopia [Unknown]
